FAERS Safety Report 7538913-4 (Version None)
Quarter: 2011Q2

REPORT INFORMATION
  Report Type: 
  Country: None (occurrence: None)
  Receive Date: 20110610
  Receipt Date: 20110601
  Transmission Date: 20111010
  Serious: Yes (Other)
  Sender: FDA-Public Use
  Company Number: US-JNJFOC-20110602551

PATIENT
  Sex: Male
  Weight: 102.06 kg

DRUGS (13)
  1. CELEBREX [Concomitant]
     Indication: ARTHRITIS
     Route: 048
     Dates: start: 20110301
  2. LISINOPRIL AND HYDROCHLOROTHIAZIDE [Concomitant]
     Indication: HYPERTENSION
     Route: 048
     Dates: start: 20100101
  3. LISINOPRIL [Concomitant]
     Indication: HYPERTENSION
     Route: 048
     Dates: start: 20100101
  4. CELEXA [Concomitant]
     Indication: DEPRESSION
     Route: 048
  5. CLONOPIN [Concomitant]
     Indication: ANXIETY
     Dosage: 1MG IN AM 2MG IN PM FOR 6 MONTHS
     Route: 065
  6. HYALURONIC ACID [Concomitant]
     Indication: ARTHROPATHY
     Route: 065
  7. ASPIRIN [Concomitant]
     Route: 048
  8. DURAGESIC-100 [Suspect]
     Indication: BONE DISORDER
     Route: 062
     Dates: start: 20110301, end: 20110514
  9. PREVACID [Concomitant]
     Indication: DYSPEPSIA
     Route: 048
  10. PRAVASTATIN [Concomitant]
     Indication: BLOOD CHOLESTEROL INCREASED
     Route: 048
     Dates: start: 20110101
  11. CELEXA [Concomitant]
     Indication: ANXIETY
     Route: 048
  12. ATENOLOL [Concomitant]
     Indication: CARDIAC DISORDER
     Route: 048
  13. ALBUTEROL SULFATE AUTOHALER [Concomitant]
     Indication: ASTHMA
     Route: 055

REACTIONS (11)
  - INFLUENZA LIKE ILLNESS [None]
  - DIARRHOEA [None]
  - SKIN BURNING SENSATION [None]
  - APPLICATION SITE VESICLES [None]
  - MUSCLE SPASMS [None]
  - PRODUCT QUALITY ISSUE [None]
  - DISABILITY [None]
  - HEADACHE [None]
  - BURNING SENSATION [None]
  - TREATMENT NONCOMPLIANCE [None]
  - NAUSEA [None]
